FAERS Safety Report 13225252 (Version 2)
Quarter: 2017Q1

REPORT INFORMATION
  Report Type: Spontaneous
  Country: IE (occurrence: IE)
  Receive Date: 20170213
  Receipt Date: 20170303
  Transmission Date: 20170428
  Serious: Yes (Death, Life-Threatening, Hospitalization, Other)
  Sender: FDA-Public Use
  Company Number: IE-AMGEN-IRLSP2017021658

PATIENT
  Age: 73 Year
  Sex: Male

DRUGS (8)
  1. VECTIBIX [Suspect]
     Active Substance: PANITUMUMAB
     Indication: GASTROINTESTINAL CARCINOMA
     Dosage: 400 MG, Q2WK
     Route: 042
     Dates: start: 201611, end: 20170117
  2. IRINOTECAN [Concomitant]
     Active Substance: IRINOTECAN
     Dosage: 340 MG, UNK X 5 CYCLES
     Route: 042
  3. DEXAMETHASONE. [Concomitant]
     Active Substance: DEXAMETHASONE
     Indication: PROPHYLAXIS
     Dosage: 2 MG, 2 IN 1 D
     Route: 048
  4. 5-FLUOROURACIL [Concomitant]
     Active Substance: FLUOROURACIL
     Dosage: 4200 MG, UNK (X 5 CYCLES)
     Route: 042
  5. VECTIBIX [Suspect]
     Active Substance: PANITUMUMAB
     Indication: METASTASES TO LIVER
  6. 5-FLUOROURACIL [Concomitant]
     Active Substance: FLUOROURACIL
     Dosage: 725 MG, UNK
     Route: 040
  7. MINOCIN [Concomitant]
     Active Substance: MINOCYCLINE HYDROCHLORIDE
     Indication: SKIN DISORDER
     Dosage: 100 MG, 1 IN 1 D
     Route: 048
  8. DULOXETINE. [Concomitant]
     Active Substance: DULOXETINE
     Indication: PARAESTHESIA
     Dosage: 30 MG, 1 IN 1 D
     Route: 048

REACTIONS (2)
  - Sepsis [Fatal]
  - Necrotising fasciitis [Fatal]

NARRATIVE: CASE EVENT DATE: 201701
